FAERS Safety Report 9435210 (Version 2)
Quarter: 2013Q3

REPORT INFORMATION
  Report Type: Spontaneous
  Country: DK (occurrence: None)
  Receive Date: 20130730
  Receipt Date: 20130813
  Transmission Date: 20140515
  Serious: Yes (Hospitalization)
  Sender: FDA-Public Use
  Company Number: FK201302676

PATIENT
  Age: 62 Year
  Sex: Female

DRUGS (13)
  1. CARBOPLATIN [Suspect]
     Indication: BREAST CANCER
  2. GEMCITABINE [Suspect]
     Indication: BREAST CANCER
  3. VINORELBINE [Suspect]
     Indication: BREAST CANCER
  4. CYCLOPHOSPHAMIDE [Suspect]
     Indication: BREAST CANCER
     Dates: end: 2003
  5. CORODIL (ENALAPRIL MALEAT) (ENALAPRIL MALEAT) [Concomitant]
  6. METHOTREXATE [Suspect]
     Indication: BREAST CANCER
     Dates: start: 2003
  7. FLUOROURACIL [Suspect]
     Indication: BREAST CANCER
     Dates: start: 2003
  8. EPIRUBICIN [Suspect]
     Indication: BREAST CANCER
  9. HERCEPTIN [Suspect]
     Indication: BREAST CANCER
  10. XELODA [Suspect]
     Indication: BREAST CANCER
  11. TAXOTERE [Suspect]
     Indication: BREAST CANCER
  12. ERIBULIN [Suspect]
  13. LAPATINIB [Suspect]
     Indication: BREAST CANCER
     Dates: start: 20100719

REACTIONS (2)
  - Disease progression [None]
  - Cardiac disorder [None]
